FAERS Safety Report 4347273-1 (Version None)
Quarter: 2004Q1

REPORT INFORMATION
  Report Type: 
  Country: None (occurrence: None)
  Receive Date: 20040325
  Receipt Date: 20031205
  Transmission Date: 20041129
  Serious: No
  Sender: FDA-Public Use
  Company Number: USA031152421

PATIENT
  Age: 82 Year
  Sex: Female

DRUGS (8)
  1. FORTEO [Suspect]
     Indication: OSTEOPOROSIS
     Dosage: 20 UG/DAY
     Dates: start: 20030801
  2. PREVACID [Concomitant]
  3. WELLBUTRIN [Concomitant]
  4. FOLIC ACID [Concomitant]
  5. VITAMIN D [Concomitant]
  6. LIPITOR [Concomitant]
  7. DITROPAN [Concomitant]
  8. XANAX [Concomitant]

REACTIONS (5)
  - COUGH [None]
  - FEELING ABNORMAL [None]
  - NASOPHARYNGITIS [None]
  - PYREXIA [None]
  - VIRAL INFECTION [None]
